FAERS Safety Report 7874890-4 (Version None)
Quarter: 2011Q4

REPORT INFORMATION
  Report Type: 
  Country: None (occurrence: None)
  Receive Date: 20111031
  Receipt Date: 20111024
  Transmission Date: 20120403
  Serious: Yes (Death)
  Sender: FDA-Public Use
  Company Number: FR-JNJFOC-20111012862

PATIENT

DRUGS (37)
  1. CYCLOPHOSPHAMIDE [Suspect]
     Indication: LYMPHOMA
     Route: 065
  2. CYCLOPHOSPHAMIDE [Suspect]
     Route: 065
  3. ELDISINE [Suspect]
     Route: 065
  4. ELDISINE [Suspect]
     Route: 065
  5. IFOSFAMIDE [Suspect]
     Indication: LYMPHOMA
  6. CYCLOPHOSPHAMIDE [Suspect]
     Route: 065
  7. CYCLOPHOSPHAMIDE [Suspect]
     Route: 065
  8. MESNA [Suspect]
     Route: 042
  9. IFOSFAMIDE [Suspect]
  10. ETOPOSIDE [Suspect]
     Route: 065
  11. CYTARABINE [Suspect]
     Indication: LYMPHOMA
     Route: 065
  12. CYTARABINE [Suspect]
     Route: 065
  13. ELDISINE [Suspect]
     Route: 065
  14. BLEOMYCIN SULFATE [Suspect]
     Indication: LYMPHOMA
     Route: 042
  15. BLEOMYCIN SULFATE [Suspect]
     Route: 042
  16. ETOPOSIDE [Suspect]
     Route: 065
  17. MESNA [Suspect]
     Route: 042
  18. ELDISINE [Suspect]
     Indication: LYMPHOMA
     Route: 065
  19. BLEOMYCIN SULFATE [Suspect]
     Route: 042
  20. METHOTREXATE [Suspect]
     Route: 065
  21. DOXORUBICIN HCL [Suspect]
     Route: 042
  22. MESNA [Suspect]
     Route: 042
  23. BLEOMYCIN SULFATE [Suspect]
     Route: 042
  24. IFOSFAMIDE [Suspect]
  25. IFOSFAMIDE [Suspect]
  26. ETOPOSIDE [Suspect]
     Indication: LYMPHOMA
     Route: 065
  27. ETOPOSIDE [Suspect]
     Route: 065
  28. CYTARABINE [Suspect]
     Route: 065
  29. NEUPOGEN [Concomitant]
     Route: 065
  30. DOXORUBICIN HCL [Suspect]
     Indication: LYMPHOMA
     Route: 042
  31. DOXORUBICIN HCL [Suspect]
     Route: 042
  32. DOXORUBICIN HCL [Suspect]
     Route: 042
  33. MESNA [Suspect]
     Indication: LYMPHOMA
     Route: 042
  34. PREDNISONE [Suspect]
     Indication: LYMPHOMA
     Route: 048
  35. METHOTREXATE [Suspect]
     Indication: LYMPHOMA
     Route: 037
  36. METHOTREXATE [Suspect]
     Route: 065
  37. CYTARABINE [Suspect]
     Route: 065

REACTIONS (1)
  - COMPLETED SUICIDE [None]
